FAERS Safety Report 24883834 (Version 2)
Quarter: 2025Q1

REPORT INFORMATION
  Report Type: Spontaneous
  Country: US (occurrence: US)
  Receive Date: 20250124
  Receipt Date: 20250130
  Transmission Date: 20250409
  Serious: No
  Sender: BIOGEN
  Company Number: US-BIOGEN-2024BI01272841

PATIENT
  Sex: Female

DRUGS (2)
  1. VUMERITY [Suspect]
     Active Substance: DIROXIMEL FUMARATE
     Indication: Multiple sclerosis
     Dosage: ALSO REPORTED TO BE STARTED ON 07-JUL-2024
     Route: 050
     Dates: start: 20240701
  2. VUMERITY [Suspect]
     Active Substance: DIROXIMEL FUMARATE
     Dosage: ADJUSTED THE DOSE TO 1 PILL IN THE MORNING AND 2 PILLS AT NIGHT
     Route: 050
     Dates: start: 2024

REACTIONS (10)
  - Breast swelling [Not Recovered/Not Resolved]
  - Paraesthesia [Not Recovered/Not Resolved]
  - Hypoacusis [Not Recovered/Not Resolved]
  - Dehydration [Unknown]
  - Constipation [Recovered/Resolved]
  - Feeling cold [Recovered/Resolved]
  - Rash [Not Recovered/Not Resolved]
  - Feeling hot [Unknown]
  - Flushing [Unknown]
  - Pruritus [Recovered/Resolved]

NARRATIVE: CASE EVENT DATE: 20240101
